FAERS Safety Report 14845911 (Version 6)
Quarter: 2020Q3

REPORT INFORMATION
  Report Type: Report from Study
  Country: US (occurrence: US)
  Receive Date: 20180504
  Receipt Date: 20200717
  Transmission Date: 20201102
  Serious: Yes (Hospitalization)
  Sender: FDA-Public Use
  Company Number: US-TAKEDA-2018TUS014894

PATIENT
  Sex: Male

DRUGS (2)
  1. PONATINIB [Suspect]
     Active Substance: PONATINIB
     Indication: ACUTE LYMPHOCYTIC LEUKAEMIA
     Dosage: 15 MILLIGRAM, QD
     Route: 048
     Dates: start: 201708
  2. PONATINIB [Suspect]
     Active Substance: PONATINIB
     Dosage: 15 MILLIGRAM, QD
     Route: 048
     Dates: start: 202004

REACTIONS (8)
  - Vision blurred [Unknown]
  - Illness [Unknown]
  - Vomiting [Unknown]
  - Product dose omission issue [Unknown]
  - Hyperchlorhydria [Unknown]
  - Treatment noncompliance [Unknown]
  - Constipation [Unknown]
  - Mental disorder [Unknown]
